FAERS Safety Report 5286401-0 (Version None)
Quarter: 2007Q1

REPORT INFORMATION
  Report Type: 
  Country: None (occurrence: None)
  Receive Date: 20070116
  Receipt Date: 20060801
  Transmission Date: 20070707
  Serious: No
  Sender: FDA-Public Use
  Company Number: 2006SP002886

PATIENT
  Age: 73 Year
  Sex: Female

DRUGS (6)
  1. LUNESTA [Suspect]
     Dosage: 3 MG;ORAL
     Route: 048
     Dates: start: 20060531, end: 20060707
  2. TRAZODONE HCL [Concomitant]
  3. LEXAPRO [Concomitant]
  4. RISPERDAL [Concomitant]
  5. AMITRIPTYLINE HCL [Concomitant]
  6. KLONOPIN [Concomitant]

REACTIONS (1)
  - SYNCOPE [None]
